FAERS Safety Report 9044118 (Version 1)
Quarter: 2013Q1

REPORT INFORMATION
  Report Type: Report from Study
  Country: US (occurrence: US)
  Receive Date: 20130130
  Receipt Date: 20130130
  Transmission Date: 20140127
  Serious: No
  Sender: FDA-Public Use
  Company Number: US-ABBOTT-12P-163-0948879-00

PATIENT
  Age: 80 Year
  Sex: Female

DRUGS (8)
  1. HUMIRA 40 MG/0.8 ML PEN [Suspect]
     Indication: PSORIASIS
     Dates: start: 201001
  2. LISINOPRIL [Suspect]
     Indication: PRODUCT USED FOR UNKNOWN INDICATION
     Dates: start: 201112, end: 201112
  3. ATENOLOL [Concomitant]
     Indication: PRODUCT USED FOR UNKNOWN INDICATION
  4. NEXIUM [Concomitant]
     Indication: PRODUCT USED FOR UNKNOWN INDICATION
  5. BABY ASPIRIN [Concomitant]
     Indication: PRODUCT USED FOR UNKNOWN INDICATION
     Dosage: TAKES TWO
  6. NORVASC [Concomitant]
     Indication: BLOOD CHOLESTEROL INCREASED
     Dates: start: 201112
  7. NORVASC [Concomitant]
     Dates: end: 201112
  8. CRESTOR [Concomitant]
     Indication: PRODUCT USED FOR UNKNOWN INDICATION
     Dates: start: 201112

REACTIONS (10)
  - Swollen tongue [Recovering/Resolving]
  - Wound complication [Recovering/Resolving]
  - Wound complication [Recovering/Resolving]
  - Impaired healing [Recovering/Resolving]
  - Pain in extremity [Unknown]
  - Hyperkeratosis [Unknown]
  - Skin wound [Not Recovered/Not Resolved]
  - Pain in extremity [Not Recovered/Not Resolved]
  - Psoriasis [Not Recovered/Not Resolved]
  - Skin wound [Not Recovered/Not Resolved]
